FAERS Safety Report 12364002 (Version 1)
Quarter: 2016Q2

REPORT INFORMATION
  Report Type: Report from Study
  Country: US (occurrence: US)
  Receive Date: 20160512
  Receipt Date: 20160512
  Transmission Date: 20160815
  Serious: Yes (Other)
  Sender: FDA-Public Use
  Company Number: US-MYLANLABS-2016M1013330

PATIENT
  Sex: Female
  Weight: 68.27 kg

DRUGS (3)
  1. SPRINTEC [Concomitant]
     Active Substance: ETHINYL ESTRADIOL\NORGESTIMATE
  2. AMNESTEEM [Suspect]
     Active Substance: ISOTRETINOIN
     Indication: ACNE
     Dosage: 40 MG, QD (ODD DAYS)
     Route: 048
     Dates: start: 20151230, end: 20160318
  3. AMNESTEEM [Suspect]
     Active Substance: ISOTRETINOIN
     Dosage: 40 MG, BID (EVEN DAYS)
     Route: 048
     Dates: start: 20151230, end: 20160318

REACTIONS (3)
  - Rectal haemorrhage [Recovered/Resolved]
  - Rectal fissure [Unknown]
  - Faeces hard [Recovered/Resolved]
